FAERS Safety Report 21794552 (Version 7)
Quarter: 2025Q3

REPORT INFORMATION
  Report Type: Spontaneous
  Country: EU (occurrence: EU)
  Receive Date: 20221229
  Receipt Date: 20250925
  Transmission Date: 20251021
  Serious: Yes (Death, Hospitalization, Other)
  Sender: MYLAN
  Company Number: EU-009507513-2205POL008516

PATIENT
  Age: 69 Year
  Sex: Male

DRUGS (32)
  1. ZOLEDRONIC ACID [Suspect]
     Active Substance: ZOLEDRONIC ACID
     Indication: Lung adenocarcinoma
  2. ZOLEDRONIC ACID [Suspect]
     Active Substance: ZOLEDRONIC ACID
     Indication: Metastatic bone disease prophylaxis
     Route: 042
  3. ZOLEDRONIC ACID [Suspect]
     Active Substance: ZOLEDRONIC ACID
     Route: 042
  4. ZOLEDRONIC ACID [Suspect]
     Active Substance: ZOLEDRONIC ACID
  5. PEMETREXED [Suspect]
     Active Substance: PEMETREXED
     Indication: Lung adenocarcinoma
     Dosage: 500 DOSAGE FORM, Q3W,500 MG/M2, CYCLE
     Dates: start: 20210325
  6. PEMETREXED [Suspect]
     Active Substance: PEMETREXED
     Indication: Immunochemotherapy
     Dosage: 500 DOSAGE FORM, Q3W,500 MG/M2, CYCLE
     Route: 042
     Dates: start: 20210325
  7. PEMETREXED [Suspect]
     Active Substance: PEMETREXED
     Dosage: 500 DOSAGE FORM, Q3W,500 MG/M2, CYCLE
     Route: 042
     Dates: start: 20210325
  8. PEMETREXED [Suspect]
     Active Substance: PEMETREXED
     Dosage: 500 DOSAGE FORM, Q3W,500 MG/M2, CYCLE
     Dates: start: 20210325
  9. CISPLATIN [Suspect]
     Active Substance: CISPLATIN
     Indication: Lung adenocarcinoma
     Dosage: 75 DOSAGE FORM, Q3W,75 MG/M2
     Dates: start: 20210325
  10. CISPLATIN [Suspect]
     Active Substance: CISPLATIN
     Indication: Lung adenocarcinoma stage IV
     Dosage: 75 DOSAGE FORM, Q3W,75 MG/M2
     Route: 042
     Dates: start: 20210325
  11. CISPLATIN [Suspect]
     Active Substance: CISPLATIN
     Dosage: 75 DOSAGE FORM, Q3W,75 MG/M2
     Route: 042
     Dates: start: 20210325
  12. CISPLATIN [Suspect]
     Active Substance: CISPLATIN
     Dosage: 75 DOSAGE FORM, Q3W,75 MG/M2
     Dates: start: 20210325
  13. PEMBROLIZUMAB [Suspect]
     Active Substance: PEMBROLIZUMAB
     Indication: Lung adenocarcinoma
     Dosage: 200 MILLIGRAM, Q3W, FIXED DOSE (INTRAVENOUSLY IN 21-DAY CYCLE)
     Dates: start: 20210325, end: 202111
  14. PEMBROLIZUMAB [Suspect]
     Active Substance: PEMBROLIZUMAB
     Indication: Immunochemotherapy
     Dosage: 200 MILLIGRAM, Q3W, FIXED DOSE (INTRAVENOUSLY IN 21-DAY CYCLE)
     Route: 042
     Dates: start: 20210325, end: 202111
  15. PEMBROLIZUMAB [Suspect]
     Active Substance: PEMBROLIZUMAB
     Indication: Lung adenocarcinoma stage IV
     Dosage: 200 MILLIGRAM, Q3W, FIXED DOSE (INTRAVENOUSLY IN 21-DAY CYCLE)
     Route: 042
     Dates: start: 20210325, end: 202111
  16. PEMBROLIZUMAB [Suspect]
     Active Substance: PEMBROLIZUMAB
     Dosage: 200 MILLIGRAM, Q3W, FIXED DOSE (INTRAVENOUSLY IN 21-DAY CYCLE)
     Dates: start: 20210325, end: 202111
  17. FOLIC ACID [Concomitant]
     Active Substance: FOLIC ACID
     Indication: Supplementation therapy
  18. FOLIC ACID [Concomitant]
     Active Substance: FOLIC ACID
     Route: 065
  19. FOLIC ACID [Concomitant]
     Active Substance: FOLIC ACID
     Route: 065
  20. FOLIC ACID [Concomitant]
     Active Substance: FOLIC ACID
  21. VITAMIN B12 [Concomitant]
     Active Substance: CYANOCOBALAMIN
     Indication: Supplementation therapy
  22. VITAMIN B12 [Concomitant]
     Active Substance: CYANOCOBALAMIN
     Route: 065
  23. VITAMIN B12 [Concomitant]
     Active Substance: CYANOCOBALAMIN
     Route: 065
  24. VITAMIN B12 [Concomitant]
     Active Substance: CYANOCOBALAMIN
  25. DARBEPOETIN ALFA [Concomitant]
     Active Substance: DARBEPOETIN ALFA
     Indication: Prophylaxis
  26. DARBEPOETIN ALFA [Concomitant]
     Active Substance: DARBEPOETIN ALFA
     Indication: Lung adenocarcinoma
     Route: 065
  27. DARBEPOETIN ALFA [Concomitant]
     Active Substance: DARBEPOETIN ALFA
     Indication: Neutropenia
     Route: 065
  28. DARBEPOETIN ALFA [Concomitant]
     Active Substance: DARBEPOETIN ALFA
     Indication: Lung adenocarcinoma stage IV
  29. FILGRASTIM [Concomitant]
     Active Substance: FILGRASTIM
     Indication: Prophylaxis
  30. FILGRASTIM [Concomitant]
     Active Substance: FILGRASTIM
     Indication: Lung adenocarcinoma
     Route: 065
  31. FILGRASTIM [Concomitant]
     Active Substance: FILGRASTIM
     Indication: Anaemia
     Route: 065
  32. FILGRASTIM [Concomitant]
     Active Substance: FILGRASTIM

REACTIONS (14)
  - COVID-19 [Fatal]
  - Malignant neoplasm progression [Unknown]
  - Lumbar vertebral fracture [Unknown]
  - Atrial fibrillation [Recovered/Resolved]
  - Neutropenia [Unknown]
  - Anaemia [Unknown]
  - Therapeutic product effect incomplete [Unknown]
  - Compression fracture [Unknown]
  - Metastases to lung [Unknown]
  - Haematotoxicity [Unknown]
  - Decreased appetite [Unknown]
  - Nausea [Unknown]
  - Fatigue [Unknown]
  - Off label use [Unknown]

NARRATIVE: CASE EVENT DATE: 20210101
